FAERS Safety Report 16261948 (Version 1)
Quarter: 2019Q2

REPORT INFORMATION
  Report Type: Spontaneous
  Country: IT (occurrence: IT)
  Receive Date: 20190501
  Receipt Date: 20190501
  Transmission Date: 20190711
  Serious: Yes (Death, Other)
  Sender: FDA-Public Use
  Company Number: IT-PFIZER INC-2019184822

PATIENT
  Age: 66 Year
  Sex: Female
  Weight: 53 kg

DRUGS (5)
  1. MITOTANE [Concomitant]
     Active Substance: MITOTANE
     Dosage: UNK
  2. CORTONE ACETATO [Concomitant]
     Active Substance: CORTISONE ACETATE
     Dosage: 2 DF, UNK
     Route: 048
  3. CISPLATINO TEVA [Suspect]
     Active Substance: CISPLATIN
     Indication: ADRENAL GLAND CANCER METASTATIC
     Dosage: 40 MG/M2, CYCLIC
     Route: 042
     Dates: start: 20190322
  4. DOXORUBICINA [Suspect]
     Active Substance: DOXORUBICIN HYDROCHLORIDE
     Indication: ADRENAL GLAND CANCER METASTATIC
     Dosage: 40 MG/M2, CYCLIC
     Route: 042
     Dates: start: 20190322
  5. ETOPOSIDE. [Suspect]
     Active Substance: ETOPOSIDE
     Indication: ADRENAL GLAND CANCER METASTATIC
     Dosage: 100 MG/M2, CYCLIC
     Route: 042
     Dates: start: 20190322

REACTIONS (6)
  - Thrombocytopenia [Fatal]
  - Death [Fatal]
  - Febrile neutropenia [Fatal]
  - Sepsis [Fatal]
  - Hypovolaemic shock [Fatal]
  - Haemoptysis [Fatal]

NARRATIVE: CASE EVENT DATE: 20190401
